FAERS Safety Report 19129972 (Version 2)
Quarter: 2024Q3

REPORT INFORMATION
  Report Type: Spontaneous
  Country: DE (occurrence: DE)
  Receive Date: 20210414
  Receipt Date: 20240730
  Transmission Date: 20241017
  Serious: Yes (Hospitalization)
  Sender: AUROBINDO
  Company Number: DE-TEVA-2021-DE-1896014

PATIENT
  Age: 46 Year
  Sex: Female

DRUGS (4)
  1. CLOZAPINE [Suspect]
     Active Substance: CLOZAPINE
     Indication: Psychotic symptom
     Dosage: 400 MILLIGRAM (INITIAL DOSE; DOSE EVENTUALLY INCREASED UP TO 1000MG )
     Route: 048
  2. OLANZAPINE [Suspect]
     Active Substance: OLANZAPINE
     Indication: Psychotic symptom
     Dosage: 25 MILLIGRAM
     Route: 048
  3. QUETIAPINE [Suspect]
     Active Substance: QUETIAPINE
     Indication: Psychotic symptom
     Dosage: 1400 MILLIGRAM
     Route: 048
  4. MIRTAZAPINE [Concomitant]
     Active Substance: MIRTAZAPINE
     Indication: Depression
     Dosage: 45 MILLIGRAM
     Route: 048

REACTIONS (2)
  - Obsessive-compulsive symptom [Recovered/Resolved]
  - Condition aggravated [Recovered/Resolved]
